FAERS Safety Report 20382963 (Version 2)
Quarter: 2022Q2

REPORT INFORMATION
  Report Type: Spontaneous
  Country: US (occurrence: None)
  Receive Date: 20220127
  Receipt Date: 20220629
  Transmission Date: 20220720
  Serious: Yes (Other)
  Sender: FDA-Public Use
  Company Number: 2022A033037

PATIENT
  Age: 70 Year
  Sex: Female
  Weight: 59.9 kg

DRUGS (281)
  1. NEXIUM [Suspect]
     Active Substance: ESOMEPRAZOLE MAGNESIUM
     Indication: Gastrooesophageal reflux disease
     Route: 048
     Dates: start: 2007, end: 2019
  2. NEXIUM [Suspect]
     Active Substance: ESOMEPRAZOLE MAGNESIUM
     Indication: Gastrooesophageal reflux disease
     Route: 048
     Dates: start: 2007, end: 2019
  3. NEXIUM [Suspect]
     Active Substance: ESOMEPRAZOLE MAGNESIUM
     Indication: Gastrooesophageal reflux disease
     Route: 048
     Dates: start: 2006, end: 2019
  4. NEXIUM [Suspect]
     Active Substance: ESOMEPRAZOLE MAGNESIUM
     Indication: Gastrooesophageal reflux disease
     Route: 048
     Dates: start: 2006, end: 2019
  5. NEXIUM [Suspect]
     Active Substance: ESOMEPRAZOLE MAGNESIUM
     Indication: Gastrooesophageal reflux disease
     Dosage: GENERIC
     Route: 065
     Dates: start: 2015, end: 2019
  6. NEXIUM [Suspect]
     Active Substance: ESOMEPRAZOLE MAGNESIUM
     Indication: Gastrooesophageal reflux disease
     Dosage: GENERIC
     Route: 065
     Dates: start: 2015, end: 2019
  7. NEXIUM 24HR [Suspect]
     Active Substance: ESOMEPRAZOLE MAGNESIUM
     Indication: Gastrooesophageal reflux disease
     Route: 048
     Dates: start: 2007, end: 2019
  8. NEXIUM 24HR [Suspect]
     Active Substance: ESOMEPRAZOLE MAGNESIUM
     Indication: Gastrooesophageal reflux disease
     Route: 048
     Dates: start: 2007, end: 2019
  9. NEXIUM 24HR [Suspect]
     Active Substance: ESOMEPRAZOLE MAGNESIUM
     Indication: Gastrooesophageal reflux disease
     Route: 048
     Dates: start: 2015, end: 2019
  10. NEXIUM 24HR [Suspect]
     Active Substance: ESOMEPRAZOLE MAGNESIUM
     Indication: Gastrooesophageal reflux disease
     Route: 048
     Dates: start: 2015, end: 2019
  11. PRILOSEC [Suspect]
     Active Substance: OMEPRAZOLE MAGNESIUM
     Indication: Gastrooesophageal reflux disease
     Route: 048
     Dates: start: 2007, end: 2019
  12. PRILOSEC [Suspect]
     Active Substance: OMEPRAZOLE MAGNESIUM
     Indication: Gastrooesophageal reflux disease
     Route: 048
     Dates: start: 2007, end: 2019
  13. PRILOSEC [Suspect]
     Active Substance: OMEPRAZOLE MAGNESIUM
     Indication: Gastrooesophageal reflux disease
     Dosage: GENERIC
     Route: 065
     Dates: start: 2013
  14. PRILOSEC [Suspect]
     Active Substance: OMEPRAZOLE MAGNESIUM
     Indication: Gastrooesophageal reflux disease
     Dosage: GENERIC
     Route: 065
     Dates: start: 2013
  15. PRILOSEC [Suspect]
     Active Substance: OMEPRAZOLE MAGNESIUM
     Indication: Gastrooesophageal reflux disease
     Route: 048
     Dates: start: 2015, end: 2019
  16. PRILOSEC [Suspect]
     Active Substance: OMEPRAZOLE MAGNESIUM
     Indication: Gastrooesophageal reflux disease
     Route: 048
     Dates: start: 2015, end: 2019
  17. PRILOSEC OTC [Suspect]
     Active Substance: OMEPRAZOLE MAGNESIUM
     Indication: Gastrooesophageal reflux disease
     Route: 048
     Dates: start: 2015, end: 2019
  18. PRILOSEC OTC [Suspect]
     Active Substance: OMEPRAZOLE MAGNESIUM
     Indication: Gastrooesophageal reflux disease
     Route: 048
     Dates: start: 2015, end: 2019
  19. PREVACID [Suspect]
     Active Substance: LANSOPRAZOLE
     Indication: Gastrooesophageal reflux disease
     Route: 065
     Dates: start: 2015, end: 2019
  20. PREVACID [Suspect]
     Active Substance: LANSOPRAZOLE
     Indication: Gastrooesophageal reflux disease
     Route: 065
     Dates: start: 2015, end: 2019
  21. PREVACID [Suspect]
     Active Substance: LANSOPRAZOLE
     Indication: Gastrooesophageal reflux disease
     Dosage: GENERIC
     Route: 065
  22. PREVACID [Suspect]
     Active Substance: LANSOPRAZOLE
     Indication: Gastrooesophageal reflux disease
     Dosage: GENERIC
     Route: 065
  23. PREVACID 24 HR [Suspect]
     Active Substance: LANSOPRAZOLE
     Indication: Gastrooesophageal reflux disease
     Route: 065
     Dates: start: 2015, end: 2019
  24. PREVACID 24 HR [Suspect]
     Active Substance: LANSOPRAZOLE
     Indication: Gastrooesophageal reflux disease
     Route: 065
     Dates: start: 2015, end: 2019
  25. PREVACID 24 HR [Suspect]
     Active Substance: LANSOPRAZOLE
     Indication: Gastrooesophageal reflux disease
     Dosage: GENERIC
     Route: 065
  26. PREVACID 24 HR [Suspect]
     Active Substance: LANSOPRAZOLE
     Indication: Gastrooesophageal reflux disease
     Dosage: GENERIC
     Route: 065
  27. PROTONIX [Suspect]
     Active Substance: PANTOPRAZOLE SODIUM
     Indication: Gastrooesophageal reflux disease
     Route: 065
     Dates: start: 2007, end: 2019
  28. PROTONIX [Suspect]
     Active Substance: PANTOPRAZOLE SODIUM
     Indication: Gastrooesophageal reflux disease
     Route: 065
     Dates: start: 2007, end: 2019
  29. PROTONIX [Suspect]
     Active Substance: PANTOPRAZOLE SODIUM
     Indication: Gastrooesophageal reflux disease
     Dosage: GENERIC
     Route: 065
     Dates: start: 2015, end: 2019
  30. PROTONIX [Suspect]
     Active Substance: PANTOPRAZOLE SODIUM
     Indication: Gastrooesophageal reflux disease
     Dosage: GENERIC
     Route: 065
     Dates: start: 2015, end: 2019
  31. INDOMETHACIN [Concomitant]
     Active Substance: INDOMETHACIN
     Indication: Pain
     Dates: start: 201905
  32. ALCAFTADINE/KETOROLAC [Concomitant]
     Indication: Pain
     Dates: start: 201305
  33. ALCAFTADINE/KETOROLAC [Concomitant]
     Indication: Pain
     Dates: start: 201504
  34. ALCAFTADINE/KETOROLAC [Concomitant]
     Indication: Pain
     Dates: start: 201505
  35. TORADOL [Concomitant]
     Active Substance: KETOROLAC TROMETHAMINE
     Indication: Pain
     Dates: start: 201305
  36. TORADOL [Concomitant]
     Active Substance: KETOROLAC TROMETHAMINE
     Indication: Pain
     Dates: start: 201504
  37. TORADOL [Concomitant]
     Active Substance: KETOROLAC TROMETHAMINE
     Indication: Pain
     Dates: start: 201505
  38. MELOXICAM [Concomitant]
     Active Substance: MELOXICAM
     Indication: Pain
     Dates: start: 201312
  39. MELOXICAM [Concomitant]
     Active Substance: MELOXICAM
     Indication: Pain
     Dates: start: 201410
  40. MELOXICAM [Concomitant]
     Active Substance: MELOXICAM
     Indication: Pain
     Dates: start: 201508
  41. MELOXICAM [Concomitant]
     Active Substance: MELOXICAM
     Indication: Pain
     Dates: start: 201511
  42. MELOXICAM [Concomitant]
     Active Substance: MELOXICAM
     Indication: Pain
     Dates: start: 201608
  43. MELOXICAM [Concomitant]
     Active Substance: MELOXICAM
     Indication: Pain
     Dates: start: 201809
  44. MELOXICAM [Concomitant]
     Active Substance: MELOXICAM
     Indication: Pain
     Dates: start: 202006
  45. TRAMADOL [Concomitant]
     Active Substance: TRAMADOL
     Indication: Pain
     Dates: start: 201905
  46. TRAMADOL [Concomitant]
     Active Substance: TRAMADOL
     Indication: Pain
     Dates: start: 201904
  47. TRAMADOL [Concomitant]
     Active Substance: TRAMADOL
     Indication: Pain
     Dates: start: 201912
  48. TRAMADOL [Concomitant]
     Active Substance: TRAMADOL
     Indication: Pain
     Dates: start: 201411
  49. TRAMADOL [Concomitant]
     Active Substance: TRAMADOL
     Indication: Pain
     Dates: start: 201602
  50. TRAMADOL [Concomitant]
     Active Substance: TRAMADOL
     Indication: Pain
     Dates: start: 201808
  51. ULTRAM [Concomitant]
     Active Substance: TRAMADOL HYDROCHLORIDE
     Indication: Pain
     Dates: start: 201905
  52. AMOXICILLIN [Concomitant]
     Active Substance: AMOXICILLIN
     Indication: Infection
     Dates: start: 200902
  53. AMOXICILLIN [Concomitant]
     Active Substance: AMOXICILLIN
     Indication: Infection
     Dates: start: 200907
  54. AMOXICILLIN [Concomitant]
     Active Substance: AMOXICILLIN
     Indication: Infection
     Dates: start: 201011
  55. AMOXICILLIN [Concomitant]
     Active Substance: AMOXICILLIN
     Indication: Infection
     Dates: start: 201112
  56. AMOXICILLIN [Concomitant]
     Active Substance: AMOXICILLIN
     Indication: Infection
     Dates: start: 201201
  57. AMOXICILLIN [Concomitant]
     Active Substance: AMOXICILLIN
     Indication: Infection
     Dates: start: 201402
  58. AMOXICILLIN [Concomitant]
     Active Substance: AMOXICILLIN
     Indication: Infection
     Dates: start: 201403
  59. AMOXICILLIN [Concomitant]
     Active Substance: AMOXICILLIN
     Indication: Infection
     Dates: start: 201406
  60. AMOXICILLIN [Concomitant]
     Active Substance: AMOXICILLIN
     Indication: Infection
     Dates: start: 201411
  61. AMOXICILLIN [Concomitant]
     Active Substance: AMOXICILLIN
     Indication: Infection
     Dates: start: 201508
  62. AMPICILLIN [Concomitant]
     Active Substance: AMPICILLIN
     Indication: Infection
     Dates: start: 200703
  63. AMPICILLIN [Concomitant]
     Active Substance: AMPICILLIN
     Indication: Infection
     Dates: start: 200905
  64. CEFAZOLIN [Concomitant]
     Active Substance: CEFAZOLIN
     Indication: Infection
     Dates: start: 201504
  65. CEFAZOLIN [Concomitant]
     Active Substance: CEFAZOLIN
     Indication: Infection
     Dates: start: 201505
  66. CIPROFLOXACIN [Concomitant]
     Active Substance: CIPROFLOXACIN
     Indication: Infection
     Dates: start: 201001
  67. CIPROFLOXACIN [Concomitant]
     Active Substance: CIPROFLOXACIN
     Indication: Infection
     Dates: start: 202011
  68. GENTAMICIN [Concomitant]
     Active Substance: GENTAMICIN
     Indication: Infection
     Dates: start: 200703
  69. GENTAMICIN [Concomitant]
     Active Substance: GENTAMICIN
     Indication: Infection
     Dates: start: 201008
  70. LEVAQUIN [Concomitant]
     Active Substance: LEVOFLOXACIN
     Indication: Infection
     Dates: start: 201001
  71. TRIMETHOPRIM [Concomitant]
     Active Substance: TRIMETHOPRIM
     Indication: Infection
     Dates: start: 201202
  72. TRIMETHOPRIM [Concomitant]
     Active Substance: TRIMETHOPRIM
     Indication: Infection
     Dates: start: 201505
  73. TRIMETHOPRIM [Concomitant]
     Active Substance: TRIMETHOPRIM
     Indication: Infection
     Dates: start: 201604
  74. TRIMETHOPRIM [Concomitant]
     Active Substance: TRIMETHOPRIM
     Indication: Infection
     Dates: start: 201802
  75. TRIMETHOPRIM [Concomitant]
     Active Substance: TRIMETHOPRIM
     Indication: Infection
     Dates: start: 201805
  76. BACTRIM [Concomitant]
     Active Substance: SULFAMETHOXAZOLE\TRIMETHOPRIM
     Indication: Infection
     Dates: start: 201802
  77. LISINOPRIL [Concomitant]
     Active Substance: LISINOPRIL
     Indication: Blood pressure abnormal
     Dates: start: 2009, end: 2010
  78. LISINOPRIL [Concomitant]
     Active Substance: LISINOPRIL
     Indication: Blood pressure abnormal
     Dates: start: 2018, end: 2019
  79. LOSARTAN [Concomitant]
     Active Substance: LOSARTAN
     Indication: Blood pressure abnormal
     Dates: start: 2014, end: 2019
  80. HYDROCHLOROTHIAZIDE [Concomitant]
     Active Substance: HYDROCHLOROTHIAZIDE
     Indication: Blood pressure abnormal
     Dates: start: 201605
  81. SPIRONOLACTONE [Concomitant]
     Active Substance: SPIRONOLACTONE
     Indication: Blood pressure abnormal
     Dates: start: 202101
  82. ATORVASTATIN [Concomitant]
     Active Substance: ATORVASTATIN
     Indication: Blood cholesterol increased
     Dates: start: 2012, end: 2019
  83. LIPITOR [Concomitant]
     Active Substance: ATORVASTATIN CALCIUM
     Indication: Blood cholesterol increased
     Dates: start: 2012, end: 2019
  84. CLOPIDOGREL [Concomitant]
     Active Substance: CLOPIDOGREL BISULFATE
     Indication: Cardiac disorder
     Dates: start: 201102
  85. CLOPIDOGREL [Concomitant]
     Active Substance: CLOPIDOGREL BISULFATE
     Indication: Cardiac disorder
     Dates: start: 201911
  86. BENADRYL [Concomitant]
     Active Substance: DIPHENHYDRAMINE HYDROCHLORIDE
     Indication: Hypersensitivity
     Dosage: AS NEEDED
  87. IBUPROFEN [Concomitant]
     Active Substance: IBUPROFEN
     Indication: Pain
     Dosage: AS NEEDED
  88. ACETAMINOPHEN [Concomitant]
     Active Substance: ACETAMINOPHEN
     Indication: Pain
     Dosage: AS NEEDED
  89. ASPIRIN [Concomitant]
     Active Substance: ASPIRIN
     Indication: Pain
     Dosage: AS NEEDED
  90. FAMOTIDINE [Concomitant]
     Active Substance: FAMOTIDINE
     Dates: start: 201906
  91. FAMOTIDINE [Concomitant]
     Active Substance: FAMOTIDINE
     Dates: start: 201911
  92. RANITIDINE [Concomitant]
     Active Substance: RANITIDINE
     Dates: start: 201706
  93. RANITIDINE [Concomitant]
     Active Substance: RANITIDINE
     Dates: start: 201805
  94. RANITIDINE [Concomitant]
     Active Substance: RANITIDINE
     Dates: start: 201905
  95. TUMS [Concomitant]
     Active Substance: CALCIUM CARBONATE
  96. PEPCID [Concomitant]
     Active Substance: FAMOTIDINE
     Dates: start: 201902
  97. PEPCID [Concomitant]
     Active Substance: FAMOTIDINE
     Dates: start: 201905
  98. PEPCID [Concomitant]
     Active Substance: FAMOTIDINE
     Dates: start: 201904
  99. PEPCID [Concomitant]
     Active Substance: FAMOTIDINE
     Dates: start: 201912
  100. ZANTAC [Concomitant]
     Active Substance: RANITIDINE HYDROCHLORIDE
     Dates: start: 201902
  101. ZANTAC [Concomitant]
     Active Substance: RANITIDINE HYDROCHLORIDE
     Dates: start: 201905
  102. ZANTAC [Concomitant]
     Active Substance: RANITIDINE HYDROCHLORIDE
     Dates: start: 201903
  103. ZANTAC [Concomitant]
     Active Substance: RANITIDINE HYDROCHLORIDE
     Dates: start: 201912
  104. ZANTAC [Concomitant]
     Active Substance: RANITIDINE HYDROCHLORIDE
     Dates: start: 201906
  105. ZANTAC [Concomitant]
     Active Substance: RANITIDINE HYDROCHLORIDE
     Dates: start: 201907
  106. ZANTAC [Concomitant]
     Active Substance: RANITIDINE HYDROCHLORIDE
     Dates: start: 201909
  107. MISOPROSTOL [Concomitant]
     Active Substance: MISOPROSTOL
     Dates: start: 201902
  108. MISOPROSTOL [Concomitant]
     Active Substance: MISOPROSTOL
     Dates: start: 201905
  109. MISOPROSTOL [Concomitant]
     Active Substance: MISOPROSTOL
     Dates: start: 201903
  110. MISOPROSTOL [Concomitant]
     Active Substance: MISOPROSTOL
     Dates: start: 201912
  111. MISOPROSTOL [Concomitant]
     Active Substance: MISOPROSTOL
     Dates: start: 201906
  112. MISOPROSTOL [Concomitant]
     Active Substance: MISOPROSTOL
     Dates: start: 201907
  113. MISOPROSTOL [Concomitant]
     Active Substance: MISOPROSTOL
     Dates: start: 201909
  114. ONDANSETRON [Concomitant]
     Active Substance: ONDANSETRON
     Dates: start: 201902
  115. ONDANSETRON [Concomitant]
     Active Substance: ONDANSETRON
     Dates: start: 201905
  116. ONDANSETRON [Concomitant]
     Active Substance: ONDANSETRON
     Dates: start: 201903
  117. ONDANSETRON [Concomitant]
     Active Substance: ONDANSETRON
     Dates: start: 201912
  118. ONDANSETRON [Concomitant]
     Active Substance: ONDANSETRON
     Dates: start: 201906
  119. ONDANSETRON [Concomitant]
     Active Substance: ONDANSETRON
     Dates: start: 201907
  120. ONDANSETRON [Concomitant]
     Active Substance: ONDANSETRON
     Dates: start: 201909
  121. METOPROLOL [Concomitant]
     Active Substance: METOPROLOL
     Dates: start: 201902
  122. METOPROLOL [Concomitant]
     Active Substance: METOPROLOL
     Dates: start: 201905
  123. METOPROLOL [Concomitant]
     Active Substance: METOPROLOL
     Dates: start: 201903
  124. METOPROLOL [Concomitant]
     Active Substance: METOPROLOL
     Dates: start: 201912
  125. METOPROLOL [Concomitant]
     Active Substance: METOPROLOL
     Dates: start: 201906
  126. METOPROLOL [Concomitant]
     Active Substance: METOPROLOL
     Dates: start: 201907
  127. METOPROLOL [Concomitant]
     Active Substance: METOPROLOL
     Dates: start: 201909
  128. METRONIDAZOLE [Concomitant]
     Active Substance: METRONIDAZOLE
     Dates: start: 201902
  129. METRONIDAZOLE [Concomitant]
     Active Substance: METRONIDAZOLE
     Dates: start: 201905
  130. METRONIDAZOLE [Concomitant]
     Active Substance: METRONIDAZOLE
     Dates: start: 201903
  131. METRONIDAZOLE [Concomitant]
     Active Substance: METRONIDAZOLE
     Dates: start: 201912
  132. METRONIDAZOLE [Concomitant]
     Active Substance: METRONIDAZOLE
     Dates: start: 201906
  133. METRONIDAZOLE [Concomitant]
     Active Substance: METRONIDAZOLE
     Dates: start: 201907
  134. METRONIDAZOLE [Concomitant]
     Active Substance: METRONIDAZOLE
     Dates: start: 201909
  135. SULFAMETH [Concomitant]
     Dates: start: 201902
  136. SULFAMETH [Concomitant]
     Dates: start: 201905
  137. SULFAMETH [Concomitant]
     Dates: start: 201903
  138. SULFAMETH [Concomitant]
     Dates: start: 201912
  139. SULFAMETH [Concomitant]
     Dates: start: 201906
  140. SULFAMETH [Concomitant]
     Dates: start: 201907
  141. SULFAMETH [Concomitant]
     Dates: start: 201909
  142. BUTALBITAL [Concomitant]
     Active Substance: BUTALBITAL
     Dates: start: 201902
  143. BUTALBITAL [Concomitant]
     Active Substance: BUTALBITAL
     Dates: start: 201905
  144. BUTALBITAL [Concomitant]
     Active Substance: BUTALBITAL
     Dates: start: 201903
  145. BUTALBITAL [Concomitant]
     Active Substance: BUTALBITAL
     Dates: start: 201912
  146. BUTALBITAL [Concomitant]
     Active Substance: BUTALBITAL
     Dates: start: 201906
  147. BUTALBITAL [Concomitant]
     Active Substance: BUTALBITAL
     Dates: start: 201907
  148. BUTALBITAL [Concomitant]
     Active Substance: BUTALBITAL
     Dates: start: 201909
  149. TRIAMCINOLONE [Concomitant]
     Active Substance: TRIAMCINOLONE
     Dates: start: 201902
  150. TRIAMCINOLONE [Concomitant]
     Active Substance: TRIAMCINOLONE
     Dates: start: 201905
  151. TRIAMCINOLONE [Concomitant]
     Active Substance: TRIAMCINOLONE
     Dates: start: 201903
  152. TRIAMCINOLONE [Concomitant]
     Active Substance: TRIAMCINOLONE
     Dates: start: 201912
  153. TRIAMCINOLONE [Concomitant]
     Active Substance: TRIAMCINOLONE
     Dates: start: 201906
  154. TRIAMCINOLONE [Concomitant]
     Active Substance: TRIAMCINOLONE
     Dates: start: 201907
  155. TRIAMCINOLONE [Concomitant]
     Active Substance: TRIAMCINOLONE
     Dates: start: 201909
  156. PREDNISOLONE [Concomitant]
     Active Substance: PREDNISOLONE
     Dates: start: 201902
  157. PREDNISOLONE [Concomitant]
     Active Substance: PREDNISOLONE
     Dates: start: 201905
  158. PREDNISOLONE [Concomitant]
     Active Substance: PREDNISOLONE
     Dates: start: 201903
  159. PREDNISOLONE [Concomitant]
     Active Substance: PREDNISOLONE
     Dates: start: 201912
  160. PREDNISOLONE [Concomitant]
     Active Substance: PREDNISOLONE
     Dates: start: 201906
  161. PREDNISOLONE [Concomitant]
     Active Substance: PREDNISOLONE
     Dates: start: 201907
  162. PREDNISOLONE [Concomitant]
     Active Substance: PREDNISOLONE
     Dates: start: 201909
  163. ATROPINE SULFATE [Concomitant]
     Active Substance: ATROPINE SULFATE
     Dates: start: 201902
  164. ATROPINE SULFATE [Concomitant]
     Active Substance: ATROPINE SULFATE
     Dates: start: 201905
  165. ATROPINE SULFATE [Concomitant]
     Active Substance: ATROPINE SULFATE
     Dates: start: 201903
  166. ATROPINE SULFATE [Concomitant]
     Active Substance: ATROPINE SULFATE
     Dates: start: 201912
  167. ATROPINE SULFATE [Concomitant]
     Active Substance: ATROPINE SULFATE
     Dates: start: 201906
  168. ATROPINE SULFATE [Concomitant]
     Active Substance: ATROPINE SULFATE
     Dates: start: 201907
  169. ATROPINE SULFATE [Concomitant]
     Active Substance: ATROPINE SULFATE
     Dates: start: 201909
  170. TOPIRAMATE [Concomitant]
     Active Substance: TOPIRAMATE
     Dates: start: 201902
  171. TOPIRAMATE [Concomitant]
     Active Substance: TOPIRAMATE
     Dates: start: 201905
  172. TOPIRAMATE [Concomitant]
     Active Substance: TOPIRAMATE
     Dates: start: 201903
  173. TOPIRAMATE [Concomitant]
     Active Substance: TOPIRAMATE
     Dates: start: 201912
  174. TOPIRAMATE [Concomitant]
     Active Substance: TOPIRAMATE
     Dates: start: 201906
  175. TOPIRAMATE [Concomitant]
     Active Substance: TOPIRAMATE
     Dates: start: 201907
  176. TOPIRAMATE [Concomitant]
     Active Substance: TOPIRAMATE
     Dates: start: 201909
  177. SUMATRIPTAN [Concomitant]
     Active Substance: SUMATRIPTAN
     Dates: start: 201902
  178. SUMATRIPTAN [Concomitant]
     Active Substance: SUMATRIPTAN
     Dates: start: 201905
  179. SUMATRIPTAN [Concomitant]
     Active Substance: SUMATRIPTAN
     Dates: start: 201903
  180. SUMATRIPTAN [Concomitant]
     Active Substance: SUMATRIPTAN
     Dates: start: 201912
  181. SUMATRIPTAN [Concomitant]
     Active Substance: SUMATRIPTAN
     Dates: start: 201906
  182. SUMATRIPTAN [Concomitant]
     Active Substance: SUMATRIPTAN
     Dates: start: 201907
  183. SUMATRIPTAN [Concomitant]
     Active Substance: SUMATRIPTAN
     Dates: start: 201909
  184. DIVALPROEX SODIUM [Concomitant]
     Active Substance: DIVALPROEX SODIUM
     Dates: start: 201902
  185. DIVALPROEX SODIUM [Concomitant]
     Active Substance: DIVALPROEX SODIUM
     Dates: start: 201905
  186. DIVALPROEX SODIUM [Concomitant]
     Active Substance: DIVALPROEX SODIUM
     Dates: start: 201903
  187. DIVALPROEX SODIUM [Concomitant]
     Active Substance: DIVALPROEX SODIUM
     Dates: start: 201912
  188. DIVALPROEX SODIUM [Concomitant]
     Active Substance: DIVALPROEX SODIUM
     Dates: start: 201906
  189. DIVALPROEX SODIUM [Concomitant]
     Active Substance: DIVALPROEX SODIUM
     Dates: start: 201907
  190. DIVALPROEX SODIUM [Concomitant]
     Active Substance: DIVALPROEX SODIUM
     Dates: start: 201909
  191. BYSTOLIC [Concomitant]
     Active Substance: NEBIVOLOL HYDROCHLORIDE
     Dates: start: 201902
  192. BYSTOLIC [Concomitant]
     Active Substance: NEBIVOLOL HYDROCHLORIDE
     Dates: start: 201905
  193. BYSTOLIC [Concomitant]
     Active Substance: NEBIVOLOL HYDROCHLORIDE
     Dates: start: 201903
  194. BYSTOLIC [Concomitant]
     Active Substance: NEBIVOLOL HYDROCHLORIDE
     Dates: start: 201912
  195. BYSTOLIC [Concomitant]
     Active Substance: NEBIVOLOL HYDROCHLORIDE
     Dates: start: 201906
  196. BYSTOLIC [Concomitant]
     Active Substance: NEBIVOLOL HYDROCHLORIDE
     Dates: start: 201907
  197. BYSTOLIC [Concomitant]
     Active Substance: NEBIVOLOL HYDROCHLORIDE
     Dates: start: 201909
  198. BESIVANCE [Concomitant]
     Active Substance: BESIFLOXACIN
     Dates: start: 201902
  199. BESIVANCE [Concomitant]
     Active Substance: BESIFLOXACIN
     Dates: start: 201905
  200. BESIVANCE [Concomitant]
     Active Substance: BESIFLOXACIN
     Dates: start: 201903
  201. BESIVANCE [Concomitant]
     Active Substance: BESIFLOXACIN
     Dates: start: 201912
  202. BESIVANCE [Concomitant]
     Active Substance: BESIFLOXACIN
     Dates: start: 201906
  203. BESIVANCE [Concomitant]
     Active Substance: BESIFLOXACIN
     Dates: start: 201907
  204. BESIVANCE [Concomitant]
     Active Substance: BESIFLOXACIN
     Dates: start: 201909
  205. FLUOROURACIL [Concomitant]
     Active Substance: FLUOROURACIL
     Dates: start: 201902
  206. FLUOROURACIL [Concomitant]
     Active Substance: FLUOROURACIL
     Dates: start: 201905
  207. FLUOROURACIL [Concomitant]
     Active Substance: FLUOROURACIL
     Dates: start: 201903
  208. FLUOROURACIL [Concomitant]
     Active Substance: FLUOROURACIL
     Dates: start: 201912
  209. FLUOROURACIL [Concomitant]
     Active Substance: FLUOROURACIL
     Dates: start: 201906
  210. FLUOROURACIL [Concomitant]
     Active Substance: FLUOROURACIL
     Dates: start: 201907
  211. FLUOROURACIL [Concomitant]
     Active Substance: FLUOROURACIL
     Dates: start: 201909
  212. RESTASIS [Concomitant]
     Active Substance: CYCLOSPORINE
     Dates: start: 201902
  213. RESTASIS [Concomitant]
     Active Substance: CYCLOSPORINE
     Dates: start: 201905
  214. RESTASIS [Concomitant]
     Active Substance: CYCLOSPORINE
     Dates: start: 201903
  215. RESTASIS [Concomitant]
     Active Substance: CYCLOSPORINE
     Dates: start: 201912
  216. RESTASIS [Concomitant]
     Active Substance: CYCLOSPORINE
     Dates: start: 201906
  217. RESTASIS [Concomitant]
     Active Substance: CYCLOSPORINE
     Dates: start: 201907
  218. RESTASIS [Concomitant]
     Active Substance: CYCLOSPORINE
     Dates: start: 201909
  219. CLONIDINE [Concomitant]
     Active Substance: CLONIDINE
     Dates: start: 201902
  220. CLONIDINE [Concomitant]
     Active Substance: CLONIDINE
     Dates: start: 201905
  221. CLONIDINE [Concomitant]
     Active Substance: CLONIDINE
     Dates: start: 201903
  222. CLONIDINE [Concomitant]
     Active Substance: CLONIDINE
     Dates: start: 201912
  223. CLONIDINE [Concomitant]
     Active Substance: CLONIDINE
     Dates: start: 201906
  224. CLONIDINE [Concomitant]
     Active Substance: CLONIDINE
     Dates: start: 201907
  225. CLONIDINE [Concomitant]
     Active Substance: CLONIDINE
     Dates: start: 201909
  226. LETROZOLE [Concomitant]
     Active Substance: LETROZOLE
     Dates: start: 201902
  227. LETROZOLE [Concomitant]
     Active Substance: LETROZOLE
     Dates: start: 201905
  228. LETROZOLE [Concomitant]
     Active Substance: LETROZOLE
     Dates: start: 201903
  229. LETROZOLE [Concomitant]
     Active Substance: LETROZOLE
     Dates: start: 201912
  230. LETROZOLE [Concomitant]
     Active Substance: LETROZOLE
     Dates: start: 201906
  231. LETROZOLE [Concomitant]
     Active Substance: LETROZOLE
     Dates: start: 201907
  232. LETROZOLE [Concomitant]
     Active Substance: LETROZOLE
     Dates: start: 201909
  233. THEOBROMA CACAO/GLUTAMIC ACID/CRATAEGUS LAEVIGATA FRUIT/TRAZODONE HYDR [Concomitant]
     Dates: start: 201902
  234. THEOBROMA CACAO/GLUTAMIC ACID/CRATAEGUS LAEVIGATA FRUIT/TRAZODONE HYDR [Concomitant]
     Dates: start: 201905
  235. THEOBROMA CACAO/GLUTAMIC ACID/CRATAEGUS LAEVIGATA FRUIT/TRAZODONE HYDR [Concomitant]
     Dates: start: 201903
  236. THEOBROMA CACAO/GLUTAMIC ACID/CRATAEGUS LAEVIGATA FRUIT/TRAZODONE HYDR [Concomitant]
     Dates: start: 201912
  237. THEOBROMA CACAO/GLUTAMIC ACID/CRATAEGUS LAEVIGATA FRUIT/TRAZODONE HYDR [Concomitant]
     Dates: start: 201906
  238. THEOBROMA CACAO/GLUTAMIC ACID/CRATAEGUS LAEVIGATA FRUIT/TRAZODONE HYDR [Concomitant]
     Dates: start: 201907
  239. THEOBROMA CACAO/GLUTAMIC ACID/CRATAEGUS LAEVIGATA FRUIT/TRAZODONE HYDR [Concomitant]
     Dates: start: 201909
  240. VITAMIN D3 [Concomitant]
     Active Substance: CHOLECALCIFEROL
     Dates: start: 201902
  241. VITAMIN D3 [Concomitant]
     Active Substance: CHOLECALCIFEROL
     Dates: start: 201905
  242. VITAMIN D3 [Concomitant]
     Active Substance: CHOLECALCIFEROL
     Dates: start: 201903
  243. VITAMIN D3 [Concomitant]
     Active Substance: CHOLECALCIFEROL
     Dates: start: 201912
  244. VITAMIN D3 [Concomitant]
     Active Substance: CHOLECALCIFEROL
     Dates: start: 201906
  245. VITAMIN D3 [Concomitant]
     Active Substance: CHOLECALCIFEROL
     Dates: start: 201907
  246. VITAMIN D3 [Concomitant]
     Active Substance: CHOLECALCIFEROL
     Dates: start: 201909
  247. CYCLOBENZAPRINE [Concomitant]
     Active Substance: CYCLOBENZAPRINE
     Dates: start: 201902
  248. CYCLOBENZAPRINE [Concomitant]
     Active Substance: CYCLOBENZAPRINE
     Dates: start: 201905
  249. CYCLOBENZAPRINE [Concomitant]
     Active Substance: CYCLOBENZAPRINE
     Dates: start: 201903
  250. CYCLOBENZAPRINE [Concomitant]
     Active Substance: CYCLOBENZAPRINE
     Dates: start: 201912
  251. CYCLOBENZAPRINE [Concomitant]
     Active Substance: CYCLOBENZAPRINE
     Dates: start: 201906
  252. CYCLOBENZAPRINE [Concomitant]
     Active Substance: CYCLOBENZAPRINE
     Dates: start: 201907
  253. CYCLOBENZAPRINE [Concomitant]
     Active Substance: CYCLOBENZAPRINE
     Dates: start: 201909
  254. ALPRAZOLAM [Concomitant]
     Active Substance: ALPRAZOLAM
     Dates: start: 201902
  255. ALPRAZOLAM [Concomitant]
     Active Substance: ALPRAZOLAM
     Dates: start: 201905
  256. ALPRAZOLAM [Concomitant]
     Active Substance: ALPRAZOLAM
     Dates: start: 201903
  257. ALPRAZOLAM [Concomitant]
     Active Substance: ALPRAZOLAM
     Dates: start: 201912
  258. ALPRAZOLAM [Concomitant]
     Active Substance: ALPRAZOLAM
     Dates: start: 201906
  259. ALPRAZOLAM [Concomitant]
     Active Substance: ALPRAZOLAM
     Dates: start: 201907
  260. ALPRAZOLAM [Concomitant]
     Active Substance: ALPRAZOLAM
     Dates: start: 201909
  261. ZOSTAVAX [Concomitant]
     Active Substance: VARICELLA-ZOSTER VIRUS STRAIN OKA/MERCK LIVE ANTIGEN
     Dates: start: 201902
  262. ZOSTAVAX [Concomitant]
     Active Substance: VARICELLA-ZOSTER VIRUS STRAIN OKA/MERCK LIVE ANTIGEN
     Dates: start: 201905
  263. ZOSTAVAX [Concomitant]
     Active Substance: VARICELLA-ZOSTER VIRUS STRAIN OKA/MERCK LIVE ANTIGEN
     Dates: start: 201903
  264. ZOSTAVAX [Concomitant]
     Active Substance: VARICELLA-ZOSTER VIRUS STRAIN OKA/MERCK LIVE ANTIGEN
     Dates: start: 201912
  265. ZOSTAVAX [Concomitant]
     Active Substance: VARICELLA-ZOSTER VIRUS STRAIN OKA/MERCK LIVE ANTIGEN
     Dates: start: 201906
  266. ZOSTAVAX [Concomitant]
     Active Substance: VARICELLA-ZOSTER VIRUS STRAIN OKA/MERCK LIVE ANTIGEN
     Dates: start: 201907
  267. ZOSTAVAX [Concomitant]
     Active Substance: VARICELLA-ZOSTER VIRUS STRAIN OKA/MERCK LIVE ANTIGEN
     Dates: start: 201909
  268. DILAUDID [Concomitant]
     Active Substance: HYDROMORPHONE HYDROCHLORIDE
     Dates: start: 201902
  269. DILAUDID [Concomitant]
     Active Substance: HYDROMORPHONE HYDROCHLORIDE
     Dates: start: 201905
  270. DILAUDID [Concomitant]
     Active Substance: HYDROMORPHONE HYDROCHLORIDE
     Dates: start: 201903
  271. DILAUDID [Concomitant]
     Active Substance: HYDROMORPHONE HYDROCHLORIDE
     Dates: start: 201912
  272. DILAUDID [Concomitant]
     Active Substance: HYDROMORPHONE HYDROCHLORIDE
     Dates: start: 201906
  273. DILAUDID [Concomitant]
     Active Substance: HYDROMORPHONE HYDROCHLORIDE
     Dates: start: 201907
  274. DILAUDID [Concomitant]
     Active Substance: HYDROMORPHONE HYDROCHLORIDE
     Dates: start: 201909
  275. CALCIUM [Concomitant]
     Active Substance: CALCIUM
     Dates: start: 201902
  276. CALCIUM [Concomitant]
     Active Substance: CALCIUM
     Dates: start: 201905
  277. CALCIUM [Concomitant]
     Active Substance: CALCIUM
     Dates: start: 201903
  278. CALCIUM [Concomitant]
     Active Substance: CALCIUM
     Dates: start: 201912
  279. CALCIUM [Concomitant]
     Active Substance: CALCIUM
     Dates: start: 201906
  280. CALCIUM [Concomitant]
     Active Substance: CALCIUM
     Dates: start: 201907
  281. CALCIUM [Concomitant]
     Active Substance: CALCIUM
     Dates: start: 201909

REACTIONS (3)
  - Acute kidney injury [Not Recovered/Not Resolved]
  - Chronic kidney disease [Not Recovered/Not Resolved]
  - Gastrooesophageal reflux disease [Not Recovered/Not Resolved]

NARRATIVE: CASE EVENT DATE: 20180101
